FAERS Safety Report 25480979 (Version 4)
Quarter: 2025Q3

REPORT INFORMATION
  Report Type: Spontaneous
  Country: JP (occurrence: JP)
  Receive Date: 20250625
  Receipt Date: 20250920
  Transmission Date: 20251020
  Serious: Yes (Life-Threatening, Hospitalization, Other)
  Sender: ABBVIE
  Company Number: JP-ABBVIE-6343374

PATIENT
  Age: 16 Year
  Sex: Male
  Weight: 41 kg

DRUGS (15)
  1. HUMIRA [Suspect]
     Active Substance: ADALIMUMAB
     Indication: Crohn^s disease
     Route: 058
     Dates: start: 20210311, end: 20230207
  2. SKYRIZI [Suspect]
     Active Substance: RISANKIZUMAB-RZAA
     Indication: Crohn^s disease
     Route: 058
     Dates: start: 20240926
  3. SKYRIZI [Suspect]
     Active Substance: RISANKIZUMAB-RZAA
     Route: 058
     Dates: start: 20240118
  4. RINVOQ [Suspect]
     Active Substance: UPADACITINIB
     Indication: Crohn^s disease
     Dosage: FORM STRENGTH: 45 MILLIGRAM
     Route: 048
     Dates: start: 20250228, end: 20250615
  5. MONTELUKAST SODIUM [Concomitant]
     Active Substance: MONTELUKAST SODIUM
     Indication: Asthma
     Dosage: 10 MILLIGRAM
     Route: 048
  6. AZATHIOPRINE [Concomitant]
     Active Substance: AZATHIOPRINE
     Indication: Crohn^s disease
     Dates: end: 20190402
  7. AZATHIOPRINE [Concomitant]
     Active Substance: AZATHIOPRINE
     Indication: Crohn^s disease
     Dates: start: 20190905, end: 202302
  8. OLOPATADINE HYDROCHLORIDE [Concomitant]
     Active Substance: OLOPATADINE HYDROCHLORIDE
     Indication: Seasonal allergy
     Dosage: 10 MILLIGRAM
     Route: 048
     Dates: start: 20200302
  9. AMINO ACIDS\CARBOHYDRATES\MINERALS\SOYBEAN OIL\VITAMINS [Concomitant]
     Active Substance: AMINO ACIDS\CARBOHYDRATES\MINERALS\SOYBEAN OIL\VITAMINS
     Indication: Crohn^s disease
     Route: 048
     Dates: start: 20180626, end: 202404
  10. MESALAMINE [Concomitant]
     Active Substance: MESALAMINE
     Indication: Crohn^s disease
     Dosage: 2000 MILLIGRAM
     Route: 048
     Dates: start: 20210302
  11. PREDNISOLONE [Concomitant]
     Active Substance: PREDNISOLONE
     Indication: Crohn^s disease
     Dates: start: 20250627
  12. PREDNISOLONE [Concomitant]
     Active Substance: PREDNISOLONE
     Indication: Crohn^s disease
     Dates: start: 202504
  13. DIETARY SUPPLEMENT\PROBIOTICS [Concomitant]
     Active Substance: DIETARY SUPPLEMENT\PROBIOTICS NOS
     Indication: Product used for unknown indication
  14. MIYA-BM [Concomitant]
     Active Substance: CLOSTRIDIUM BUTYRICUM SPORES STRAIN M-55
     Indication: Product used for unknown indication
  15. USTEKINUMAB [Concomitant]
     Active Substance: USTEKINUMAB
     Indication: Product used for unknown indication
     Dates: start: 20230207

REACTIONS (31)
  - Intestinal perforation [Recovering/Resolving]
  - C-reactive protein increased [Not Recovered/Not Resolved]
  - Blood albumin decreased [Unknown]
  - Pyrexia [Unknown]
  - Prothrombin time prolonged [Unknown]
  - Protein total decreased [Unknown]
  - Nasopharyngitis [Unknown]
  - Ileus [Unknown]
  - Intestinal obstruction [Unknown]
  - Faeces hard [Unknown]
  - Large intestinal ulcer haemorrhage [Unknown]
  - White blood cell count decreased [Unknown]
  - Therapeutic product effect incomplete [Unknown]
  - Cholangitis sclerosing [Recovered/Resolved]
  - Pleural effusion [Unknown]
  - Pyrexia [Recovered/Resolved]
  - Neutrophil count decreased [Unknown]
  - Purulence [Unknown]
  - Abdominal abscess [Unknown]
  - Large intestinal ulcer [Unknown]
  - Crohn^s disease [Unknown]
  - Peritonitis [Unknown]
  - Rectal ulcer [Unknown]
  - Omphalitis [Unknown]
  - Abdominal pain lower [Unknown]
  - Granuloma [Unknown]
  - Malaise [Unknown]
  - Diarrhoea [Unknown]
  - Abdominal pain [Unknown]
  - Computerised tomogram abdomen abnormal [Unknown]
  - Vomiting [Unknown]

NARRATIVE: CASE EVENT DATE: 20230101
